FAERS Safety Report 25714666 (Version 1)
Quarter: 2025Q3

REPORT INFORMATION
  Report Type: Spontaneous
  Country: US (occurrence: US)
  Receive Date: 20250822
  Receipt Date: 20250822
  Transmission Date: 20251021
  Serious: Yes (Life-Threatening, Hospitalization)
  Sender: ACCORD
  Company Number: US-Accord-501405

PATIENT
  Age: 21 Year
  Sex: Male

DRUGS (2)
  1. LEVETIRACETAM [Suspect]
     Active Substance: LEVETIRACETAM
  2. VALPROIC ACID [Suspect]
     Active Substance: VALPROIC ACID

REACTIONS (5)
  - Intentional overdose [Unknown]
  - Toxicity to various agents [Unknown]
  - Suicide attempt [Unknown]
  - Mental status changes [Recovering/Resolving]
  - Sinus tachycardia [Recovering/Resolving]
